FAERS Safety Report 9109497 (Version 1)
Quarter: 2013Q1

REPORT INFORMATION
  Report Type: Spontaneous
  Country: US (occurrence: US)
  Receive Date: 20130222
  Receipt Date: 20130222
  Transmission Date: 20140127
  Serious: No
  Sender: FDA-Public Use
  Company Number: US-PFIZER INC-2013064202

PATIENT
  Age: 74 Year
  Sex: Female
  Weight: 71.7 kg

DRUGS (6)
  1. CELEBREX [Suspect]
     Indication: PAIN
     Dosage: UNK
  2. LYRICA [Suspect]
     Indication: PAIN
     Dosage: 50 MG, 2X/DAY
     Dates: start: 201302, end: 201302
  3. REMICADE [Suspect]
     Dosage: UNK, EVERY 8 WEEKS
  4. PREDNISONE [Concomitant]
     Dosage: 2.5 MG, UNK
  5. FUROSEMIDE [Concomitant]
     Dosage: 40 MG, UNK
  6. POTASSIUM [Concomitant]
     Dosage: 10 MG, UNK

REACTIONS (11)
  - Joint swelling [Unknown]
  - Arthralgia [Unknown]
  - Dyspepsia [Unknown]
  - Anaemia [Unknown]
  - Drug intolerance [Unknown]
  - Headache [Recovered/Resolved]
  - Facial pain [Recovered/Resolved]
  - Dizziness [Recovered/Resolved]
  - Nausea [Recovered/Resolved]
  - Amnesia [Recovered/Resolved]
  - Confusional state [Recovered/Resolved]
